FAERS Safety Report 25129529 (Version 1)
Quarter: 2025Q1

REPORT INFORMATION
  Report Type: Spontaneous
  Country: US (occurrence: None)
  Receive Date: 20250326
  Receipt Date: 20250326
  Transmission Date: 20250409
  Serious: Yes (Disabling)
  Sender: FDA-CTU
  Company Number: None

PATIENT
  Age: 61 Year
  Sex: Female
  Weight: 76.95 kg

DRUGS (16)
  1. MOUNJARO [Suspect]
     Active Substance: TIRZEPATIDE
     Indication: Product substitution
     Route: 050
     Dates: start: 20250113
  2. MOUNJARO [Suspect]
     Active Substance: TIRZEPATIDE
     Indication: Diabetes mellitus
  3. Tresiba insulin degludec 20 units/ml once a day [Concomitant]
  4. Mounjaro Tirzepatide 7.5mg once a week [Concomitant]
  5. SYNTHROID [Concomitant]
     Active Substance: LEVOTHYROXINE SODIUM
  6. Atorvastatin Calcium 10mg/1 tablet once a day [Concomitant]
  7. Omeprazole 20mg/1 tablet once a day [Concomitant]
  8. Escitalopram (Lexapro) 20mg/1 tablet once a day [Concomitant]
  9. Vitamin D 50,000 Unit/1 tablet once a month Freestyle [Concomitant]
  10. Equate Black Elderberry 100mg with [Concomitant]
  11. Zinc 7.5mg [Concomitant]
  12. Vitamin D3 2000 [Concomitant]
  13. Probiotics 24 billion [Concomitant]
  14. Aspirin 81mg/ [Concomitant]
  15. Nature^s Bounty Sleep 3 Melatonin [Concomitant]
  16. Sleep Aid w/Theanine 200mg [Concomitant]

REACTIONS (8)
  - Arthralgia [None]
  - Pain in extremity [None]
  - Pain in extremity [None]
  - Arthralgia [None]
  - Pain [None]
  - Gait disturbance [None]
  - Product substitution issue [None]
  - Adverse drug reaction [None]

NARRATIVE: CASE EVENT DATE: 20250301
